FAERS Safety Report 19429582 (Version 1)
Quarter: 2021Q2

REPORT INFORMATION
  Report Type: Spontaneous
  Country: SE (occurrence: SE)
  Receive Date: 20210617
  Receipt Date: 20210617
  Transmission Date: 20210717
  Serious: Yes (Disabling)
  Sender: FDA-Public Use
  Company Number: NVSC2021SE129751

PATIENT
  Age: 77 Year
  Sex: Female
  Weight: 63 kg

DRUGS (2)
  1. SANDIMMUN NEORAL [Suspect]
     Active Substance: CYCLOSPORINE
     Indication: PYODERMA GANGRENOSUM
     Dosage: 100 MG, QD (1 KAPSEL/DAG)
     Route: 048
     Dates: start: 20201126, end: 20210114
  2. CHOLESTAGEL [Suspect]
     Active Substance: COLESEVELAM HYDROCHLORIDE
     Indication: BILE ACID MALABSORPTION
     Dosage: 2500 MG, QD (625 MG 4 TABL /EN GANG PER DAG I SAMBAND MED MALTID)
     Route: 048
     Dates: start: 20201027

REACTIONS (2)
  - Malignant melanoma [Recovered/Resolved with Sequelae]
  - Malignant neoplasm of eye [Recovered/Resolved with Sequelae]

NARRATIVE: CASE EVENT DATE: 20210317
